FAERS Safety Report 4716953-8 (Version None)
Quarter: 2005Q3

REPORT INFORMATION
  Report Type: 
  Country: None (occurrence: None)
  Receive Date: 20050714
  Receipt Date: 20050629
  Transmission Date: 20060218
  Serious: Yes (Death)
  Sender: FDA-Public Use
  Company Number: 2005-DE-02495GD

PATIENT
  Age: 47 Year
  Sex: Male

DRUGS (8)
  1. ALTEPLASE (ALTEPLASE) [Suspect]
     Indication: THROMBOSIS IN DEVICE
     Dosage: INTERMITTENT THROMBOLYSIS DOSES RANGING FROM 50 TO 100 MG (NR, INTERMITTENT THROMBOLYSIS), IV
     Route: 042
  2. ASPIRIN [Suspect]
     Indication: ANTIPLATELET THERAPY
     Dosage: NR
  3. MIDAZOLAM HCL [Suspect]
     Indication: CLONUS
     Dosage: NR
  4. WARFARIN SODIUM [Suspect]
     Indication: ANTICOAGULANT THERAPY
     Dosage: NR
  5. CLOPIDOGREL BISULFATE [Suspect]
     Indication: ANTIPLATELET THERAPY
     Dosage: NR
  6. HEPARIN [Suspect]
     Indication: THROMBOSIS IN DEVICE
     Dosage: IV
     Route: 042
  7. PHOSPHENYTOIN (FOSPHENYTOIN) [Suspect]
     Indication: CLONUS
     Dosage: LOADED WITH 20 MG/KG (NR), IV
     Route: 042
  8. ANTIRETROVIRAL THERAPY (ANTIVIRALS FOR SYSTEMIC USE) [Concomitant]

REACTIONS (19)
  - BASILAR ARTERY THROMBOSIS [None]
  - BRAIN HERNIATION [None]
  - BRAIN OEDEMA [None]
  - BRAIN STEM SYNDROME [None]
  - CAROTID ARTERY OCCLUSION [None]
  - CEREBRAL HAEMORRHAGE [None]
  - CEREBRAL INFARCTION [None]
  - COMA [None]
  - CORNEAL REFLEX DECREASED [None]
  - DEVICE MALFUNCTION [None]
  - EMBOLISM [None]
  - GRAND MAL CONVULSION [None]
  - HAEMODYNAMIC INSTABILITY [None]
  - LOSS OF CONSCIOUSNESS [None]
  - OCULOCEPHALOGYRIC REFLEX ABSENT [None]
  - OPHTHALMOPLEGIA [None]
  - PUPIL FIXED [None]
  - THERAPEUTIC RESPONSE DECREASED [None]
  - THROMBOSIS IN DEVICE [None]
